FAERS Safety Report 6942117-3 (Version None)
Quarter: 2010Q3

REPORT INFORMATION
  Report Type: 
  Country: None (occurrence: None)
  Receive Date: 20100823
  Receipt Date: 20100716
  Transmission Date: 20110219
  Serious: Yes (Hospitalization)
  Sender: FDA-Public Use
  Company Number: THQ2010A02122

PATIENT
  Age: 64 Year
  Sex: Female

DRUGS (10)
  1. PIOGLITAZONE HCL [Suspect]
     Indication: DIABETES MELLITUS
     Dosage: 15 MG 1 CAP PER ORAL
     Route: 048
     Dates: start: 20080529
  2. EXENATIDE (ANTI-DIABETICS) [Suspect]
     Indication: DIABETES MELLITUS
     Dosage: 10 MCG
     Dates: start: 20070412
  3. METFORMIN HCL [Suspect]
     Indication: DIABETES MELLITUS
     Dosage: 1000 MG, 1CP X 2 PER ORAL
  4. EXENATIDE 10 MCG PEN, DISPOSABLE DEVICE (ANTI-DIABETICS) [Concomitant]
  5. ASPIRIN [Concomitant]
  6. PLAVIX [Concomitant]
  7. RANIDIL (RANITIDINE HYDROCHLORIDE) [Concomitant]
  8. RAMIPRIL [Concomitant]
  9. LOPRESSOR [Concomitant]
  10. SIMVASTATIN [Concomitant]

REACTIONS (1)
  - ANGINA UNSTABLE [None]
